FAERS Safety Report 7078070-4 (Version None)
Quarter: 2010Q4

REPORT INFORMATION
  Report Type: 
  Country: None (occurrence: None)
  Receive Date: 20101102
  Receipt Date: 20101020
  Transmission Date: 20110411
  Serious: No
  Sender: FDA-Public Use
  Company Number: US-BIOGENIDEC-2010BI037208

PATIENT
  Sex: Female

DRUGS (2)
  1. TYSABRI [Suspect]
     Indication: MULTIPLE SCLEROSIS
     Route: 042
     Dates: start: 20080627
  2. PHENYTOIN SODIUM [Concomitant]
     Indication: CONVULSION

REACTIONS (9)
  - AGEUSIA [None]
  - DYSGRAPHIA [None]
  - GAIT DISTURBANCE [None]
  - HYPERTENSION [None]
  - NASOPHARYNGITIS [None]
  - PERIPHERAL COLDNESS [None]
  - PNEUMONIA [None]
  - VEIN DISORDER [None]
  - WEIGHT DECREASED [None]
